FAERS Safety Report 6965487-9 (Version None)
Quarter: 2010Q3

REPORT INFORMATION
  Report Type: 
  Country: None (occurrence: None)
  Receive Date: 20100903
  Receipt Date: 20100830
  Transmission Date: 20110219
  Serious: Yes (Other)
  Sender: FDA-Public Use
  Company Number: B0672916A

PATIENT
  Age: 56 Year
  Sex: Male

DRUGS (1)
  1. RANITIDINE [Suspect]
     Route: 065

REACTIONS (8)
  - ABDOMINAL PAIN [None]
  - ANAPHYLACTIC REACTION [None]
  - ANGIOEDEMA [None]
  - DIZZINESS [None]
  - FACE OEDEMA [None]
  - HYPOTENSION [None]
  - SKIN TEST POSITIVE [None]
  - URTICARIA [None]
